FAERS Safety Report 16063268 (Version 1)
Quarter: 2019Q1

REPORT INFORMATION
  Report Type: Report from Study
  Country: ES (occurrence: ES)
  Receive Date: 20190312
  Receipt Date: 20190312
  Transmission Date: 20190418
  Serious: Yes (Hospitalization)
  Sender: FDA-Public Use
  Company Number: ES-MYLANLABS-2019M1021591

PATIENT
  Age: 70 Year
  Sex: Male
  Weight: 81 kg

DRUGS (10)
  1. FENTANYL. [Suspect]
     Active Substance: FENTANYL
     Indication: MUSCULOSKELETAL CHEST PAIN
     Dosage: 25 UG, Q72H
     Route: 062
     Dates: start: 20170423, end: 20170425
  2. FENTANYL. [Suspect]
     Active Substance: FENTANYL
     Dosage: 12 MICROGRAM, Q3D
     Route: 062
     Dates: start: 20170408, end: 20170422
  3. PARACETAMOL [Concomitant]
     Active Substance: ACETAMINOPHEN
     Indication: PRODUCT USED FOR UNKNOWN INDICATION
     Dosage: UNK
     Route: 065
  4. FENTANYL. [Suspect]
     Active Substance: FENTANYL
     Dosage: 37.5 MICROGRAM, Q3D
     Route: 062
     Dates: start: 20170407, end: 20170407
  5. FENTANYL. [Suspect]
     Active Substance: FENTANYL
     Dosage: 25 UNK
     Route: 062
     Dates: start: 20170404, end: 20170406
  6. FENTANYL. [Suspect]
     Active Substance: FENTANYL
     Dosage: 12 UNK
     Route: 062
     Dates: start: 20170330, end: 20170403
  7. INC 280 [Suspect]
     Active Substance: CAPMATINIB
     Indication: NON-SMALL CELL LUNG CANCER
     Dosage: 300 MG, BID (600 MG QD)
     Route: 048
     Dates: start: 20160915, end: 20170419
  8. INC 280 [Suspect]
     Active Substance: CAPMATINIB
     Dosage: 400 MILLIGRAM, BID
     Route: 048
     Dates: start: 20160519, end: 20160831
  9. FENTANYL. [Suspect]
     Active Substance: FENTANYL
     Indication: MUSCULOSKELETAL CHEST PAIN
     Dosage: UNK, QD
     Route: 048
     Dates: start: 20170327, end: 20170327
  10. MORPHINE [Concomitant]
     Active Substance: MORPHINE
     Indication: PRODUCT USED FOR UNKNOWN INDICATION
     Dosage: UNK
     Route: 065

REACTIONS (1)
  - Toxicity to various agents [Recovered/Resolved]

NARRATIVE: CASE EVENT DATE: 20170425
